FAERS Safety Report 9529630 (Version 1)
Quarter: 2013Q1

REPORT INFORMATION
  Report Type: Spontaneous
  Country: US (occurrence: None)
  Receive Date: 20130320
  Receipt Date: 20130320
  Transmission Date: 20140127
  Serious: Yes (Disabling)
  Sender: FDA-Public Use
  Company Number: 1327711

PATIENT
  Sex: 0

DRUGS (4)
  1. METOCLOPRAMIDE INJECTION, USP, 5MG/ML AMPUL (METOCLOPRAMIDE) [Suspect]
     Indication: ABDOMINAL DISTENSION
     Dosage: INJECTION
     Route: 050
  2. METOCLOPRAMIDE INJECTION, USP, 5MG/ML AMPUL (METOCLOPRAMIDE) [Suspect]
     Indication: DYSPEPSIA
     Dosage: INJECTION
     Route: 050
  3. METOCLOPRAMIDE [Suspect]
     Indication: ABDOMINAL DISTENSION
  4. METOCLOPRAMIDE [Suspect]
     Indication: DYSPEPSIA

REACTIONS (2)
  - Medication error [None]
  - Tardive dyskinesia [None]
